FAERS Safety Report 7940628-5 (Version None)
Quarter: 2011Q4

REPORT INFORMATION
  Report Type: 
  Country: None (occurrence: None)
  Receive Date: 20111114
  Receipt Date: 20110512
  Transmission Date: 20120403
  Serious: Yes (Death, Other)
  Sender: FDA-Public Use
  Company Number: 2011S1000342

PATIENT
  Age: 54 Year
  Sex: Male

DRUGS (7)
  1. LEVOFLOXACIN [Concomitant]
  2. VICODIN [Concomitant]
  3. VANCOMYCIN [Concomitant]
  4. ANTIBIOTICS [Concomitant]
  5. PIPERACILLIN AND TAZOBACTAM [Concomitant]
  6. CUBICIN [Suspect]
     Indication: BACTERAEMIA
     Dosage: 4.2 MG/KG;IV
     Route: 042
  7. GENTAMICIN [Concomitant]

REACTIONS (4)
  - DRUG INEFFECTIVE [None]
  - OESOPHAGEAL VARICES HAEMORRHAGE [None]
  - SEPTIC SHOCK [None]
  - RENAL FAILURE ACUTE [None]
